FAERS Safety Report 10921141 (Version 2)
Quarter: 2015Q1

REPORT INFORMATION
  Report Type: Report from Study
  Country: CA (occurrence: CA)
  Receive Date: 20150317
  Receipt Date: 20150320
  Transmission Date: 20150721
  Serious: Yes (Death, Other)
  Sender: FDA-Public Use
  Company Number: CA-ABBVIE-15K-028-1360314-00

PATIENT
  Age: 66 Year
  Sex: Female

DRUGS (1)
  1. HUMIRA [Suspect]
     Active Substance: ADALIMUMAB
     Indication: CROHN^S DISEASE
     Route: 058
     Dates: start: 20130530, end: 20141113

REACTIONS (5)
  - Colitis [Unknown]
  - Poisoning [Fatal]
  - Incarcerated hernia [Not Recovered/Not Resolved]
  - Postoperative abscess [Unknown]
  - Intestinal perforation [Fatal]

NARRATIVE: CASE EVENT DATE: 20141222
